FAERS Safety Report 9636438 (Version 1)
Quarter: 2013Q4

REPORT INFORMATION
  Report Type: Report from Study
  Country: US (occurrence: US)
  Receive Date: 20131021
  Receipt Date: 20131021
  Transmission Date: 20140711
  Serious: Yes (Hospitalization, Other)
  Sender: FDA-Public Use
  Company Number: US-TEVA-438678USA

PATIENT
  Age: 42 Year
  Sex: Male

DRUGS (2)
  1. CLOZAPINE [Suspect]
     Indication: PSYCHOTIC DISORDER
     Route: 048
  2. CLOZAPINE [Suspect]
     Indication: SCHIZOAFFECTIVE DISORDER

REACTIONS (2)
  - Neuroleptic malignant syndrome [Unknown]
  - Toxicity to various agents [Unknown]
